FAERS Safety Report 12165493 (Version 1)
Quarter: 2016Q1

REPORT INFORMATION
  Report Type: Spontaneous
  Country: CZ (occurrence: CZ)
  Receive Date: 20160309
  Receipt Date: 20160309
  Transmission Date: 20160526
  Serious: Yes (Hospitalization, Other)
  Sender: FDA-Public Use
  Company Number: CZ-BRISTOL-MYERS SQUIBB COMPANY-BMS-2016-015337

PATIENT
  Age: 68 Year
  Sex: Female

DRUGS (1)
  1. IPILIMUMAB [Suspect]
     Active Substance: IPILIMUMAB
     Indication: MALIGNANT MELANOMA
     Dosage: 3 MG/KG, Q3WK
     Route: 065

REACTIONS (6)
  - Hypopituitarism [Unknown]
  - Hypophysitis [Unknown]
  - Goitre [Unknown]
  - Hyperthyroidism [Unknown]
  - Rash maculo-papular [Recovered/Resolved]
  - Conjunctivitis [Recovered/Resolved]
